FAERS Safety Report 5442943-6 (Version None)
Quarter: 2007Q3

REPORT INFORMATION
  Report Type: 
  Country: None (occurrence: None)
  Receive Date: 20070905
  Receipt Date: 20070827
  Transmission Date: 20080115
  Serious: Yes (Hospitalization)
  Sender: FDA-Public Use
  Company Number: US-JNJFOC-20070806034

PATIENT
  Sex: Female
  Weight: 49.9 kg

DRUGS (7)
  1. DURAGESIC-100 [Suspect]
     Indication: PAIN
     Route: 062
  2. LIPITOR [Suspect]
     Indication: BLOOD CHOLESTEROL
     Route: 048
  3. LORCET-HD [Concomitant]
     Indication: BREAKTHROUGH PAIN
     Dosage: 10/325MG
     Route: 048
  4. PREMARIN [Concomitant]
     Indication: DRUG USE FOR UNKNOWN INDICATION
     Route: 048
  5. KLONOPIN [Concomitant]
     Indication: ANXIETY
     Route: 048
  6. ACIPHEX [Concomitant]
     Indication: GASTROOESOPHAGEAL REFLUX DISEASE
     Route: 048
  7. ZETIA [Concomitant]
     Indication: BLOOD CHOLESTEROL
     Route: 048

REACTIONS (7)
  - DEPRESSION [None]
  - DRUG ADMINISTERED AT INAPPROPRIATE SITE [None]
  - DRUG INEFFECTIVE [None]
  - LUNG DISORDER [None]
  - MALAISE [None]
  - PHARMACEUTICAL PRODUCT COMPLAINT [None]
  - WRONG TECHNIQUE IN DRUG USAGE PROCESS [None]
